FAERS Safety Report 5949716-6 (Version None)
Quarter: 2008Q4

REPORT INFORMATION
  Report Type: 
  Country: None (occurrence: None)
  Receive Date: 20081112
  Receipt Date: 20081107
  Transmission Date: 20090506
  Serious: Yes (Life-Threatening, Hospitalization)
  Sender: FDA-Public Use
  Company Number: FR-WYE-G01649708

PATIENT
  Sex: Female
  Weight: 73 kg

DRUGS (19)
  1. GEMTUZUMAB OZOGAMICIN [Suspect]
     Indication: ACUTE MYELOID LEUKAEMIA
     Dosage: 5 MG (3 MG/M^2) TOTAL DAILY
     Route: 042
     Dates: start: 20080118, end: 20080118
  2. GEMTUZUMAB OZOGAMICIN [Suspect]
     Dosage: 5 MG (3 MG/M^2) TOTAL DAILY
     Route: 042
     Dates: start: 20080121, end: 20080121
  3. GEMTUZUMAB OZOGAMICIN [Suspect]
     Dosage: 5 MG (3 MG/M^2) TOTAL DAILY
     Route: 042
     Dates: start: 20080124, end: 20080124
  4. QUINAPRIL HCL AND HYDROCHLOROTHIAZIDE [Concomitant]
     Route: 048
     Dates: end: 20080125
  5. EQUANIL [Concomitant]
     Route: 048
     Dates: end: 20080204
  6. NEXIUM [Concomitant]
     Route: 048
     Dates: end: 20080126
  7. TAZOCILLINE [Concomitant]
     Indication: STAPHYLOCOCCAL SEPSIS
     Route: 042
     Dates: end: 20080202
  8. TIORFAN [Concomitant]
     Dosage: 400 MG TOTAL DAILY
     Route: 048
     Dates: start: 20080124, end: 20080129
  9. ZYLORIC [Concomitant]
     Dosage: UNKNOWN
     Route: 048
  10. REVIA [Concomitant]
     Dosage: UNKNOWN
     Route: 048
  11. MOBIC [Concomitant]
     Dosage: UNKNOWN
  12. PROPOFAN [Concomitant]
     Dosage: UNKNOWN
     Route: 048
  13. FORLAX [Concomitant]
     Dosage: UNKNOWN
     Route: 048
  14. DIOVENOR [Concomitant]
     Dosage: UNKNOWN
     Route: 048
  15. CYTARABINE [Concomitant]
     Indication: ACUTE MYELOID LEUKAEMIA
     Dosage: 200 MG/M^2 TOTAL DAILY
     Dates: start: 20080118, end: 20080124
  16. PROCTOLOG [Concomitant]
     Dosage: UNKNOWN
  17. IMODIUM [Concomitant]
     Dosage: 8 MG TOTAL DAILY
     Route: 048
     Dates: start: 20080126, end: 20080202
  18. DAUNORUBICIN HCL [Concomitant]
     Dosage: 60 MG/M^2 TOTAL DAILY
     Dates: start: 20080118, end: 20080120
  19. AMLOD [Concomitant]
     Route: 048
     Dates: end: 20080125

REACTIONS (2)
  - GASTROINTESTINAL HAEMORRHAGE [None]
  - LIVER DISORDER [None]
